FAERS Safety Report 23657506 (Version 1)
Quarter: 2024Q1

REPORT INFORMATION
  Report Type: Spontaneous
  Country: US (occurrence: None)
  Receive Date: 20240320
  Receipt Date: 20240320
  Transmission Date: 20240410
  Serious: Yes (Other)
  Sender: FDA-Public Use
  Company Number: None

PATIENT
  Age: 44 Year
  Sex: Female
  Weight: 76.5 kg

DRUGS (3)
  1. DYSPORT [Suspect]
     Active Substance: ABOBOTULINUMTOXINA
     Indication: Skin cosmetic procedure
     Dates: start: 20240119, end: 20240119
  2. DYSPORT [Suspect]
     Active Substance: ABOBOTULINUMTOXINA
     Indication: Skin wrinkling
  3. DYSPORT [Suspect]
     Active Substance: ABOBOTULINUMTOXINA
     Indication: Skin wrinkling

REACTIONS (9)
  - Product use in unapproved indication [None]
  - Hypoaesthesia [None]
  - Hypoaesthesia oral [None]
  - Eyelid disorder [None]
  - Headache [None]
  - Dry mouth [None]
  - Oropharyngeal discomfort [None]
  - Dysphagia [None]
  - Eyelid ptosis [None]

NARRATIVE: CASE EVENT DATE: 20240119
